FAERS Safety Report 4852784-6 (Version None)
Quarter: 2005Q4

REPORT INFORMATION
  Report Type: 
  Country: None (occurrence: None)
  Receive Date: 20051214
  Receipt Date: 20051102
  Transmission Date: 20060501
  Serious: Yes (Other)
  Sender: FDA-Public Use
  Company Number: JP-SANOFI-SYNTHELABO-F01200502298

PATIENT
  Sex: Male
  Weight: 64 kg

DRUGS (5)
  1. OXALIPLATIN [Suspect]
     Indication: COLON CANCER
     Route: 042
     Dates: start: 20050706, end: 20050706
  2. FLUOROURACIL [Suspect]
     Dosage: 680 MG (409.6 MG/M2) IV BOLUS AND 1000 MG (602.4 MG/M2) IV CONTINUOUS INFUSION ON DAYS 1+2, Q2W
     Route: 042
     Dates: start: 20050706, end: 20050707
  3. CALCIUM LEVOFOLINATE [Suspect]
     Route: 042
     Dates: start: 20050706, end: 20050707
  4. FENTANYL [Suspect]
     Indication: CANCER PAIN
     Dosage: 17.5 MG / 3 DAYS
     Route: 062
     Dates: start: 20050706, end: 20050715
  5. MS CONTIN [Concomitant]
     Route: 048
     Dates: start: 20050715

REACTIONS (1)
  - DELUSION [None]
